FAERS Safety Report 9693045 (Version 1)
Quarter: 2013Q4

REPORT INFORMATION
  Report Type: Report from Study
  Country: CO (occurrence: CO)
  Receive Date: 20131118
  Receipt Date: 20131118
  Transmission Date: 20140711
  Serious: Yes (Death)
  Sender: FDA-Public Use
  Company Number: CO-ROCHE-1304399

PATIENT
  Age: 65 Year
  Sex: Female

DRUGS (5)
  1. LUCENTIS [Suspect]
     Indication: DIABETIC RETINAL OEDEMA
     Route: 050
     Dates: start: 20130118
  2. INSULIN [Concomitant]
  3. LOSARTAN [Concomitant]
  4. LIPITOR [Concomitant]
  5. NIFEDIPINE [Concomitant]

REACTIONS (1)
  - Death [Fatal]
